FAERS Safety Report 13175416 (Version 1)
Quarter: 2017Q1

REPORT INFORMATION
  Report Type: Spontaneous
  Country: US (occurrence: US)
  Receive Date: 20170201
  Receipt Date: 20170201
  Transmission Date: 20170428
  Serious: No
  Sender: FDA-Public Use
  Company Number: US-PFIZER INC-2017038535

PATIENT
  Age: 56 Year
  Sex: Female

DRUGS (1)
  1. KERYDIN [Suspect]
     Active Substance: TAVABOROLE
     Dosage: 4 ML, 1X/DAY (USE ONCE DAILY FOR 48 WEEKS)

REACTIONS (5)
  - Discomfort [Not Recovered/Not Resolved]
  - Burning sensation [Unknown]
  - Poor quality sleep [Unknown]
  - Pain [Not Recovered/Not Resolved]
  - Nausea [Unknown]
